FAERS Safety Report 18893310 (Version 2)
Quarter: 2021Q1

REPORT INFORMATION
  Report Type: Report from Study
  Country: BR (occurrence: BR)
  Receive Date: 20210215
  Receipt Date: 20210223
  Transmission Date: 20210420
  Serious: Yes (Death, Hospitalization, Other)
  Sender: FDA-Public Use
  Company Number: NVSC2021BR030104

PATIENT
  Age: 43 Year
  Sex: Female

DRUGS (2)
  1. VOTRIENT [Suspect]
     Active Substance: PAZOPANIB HYDROCHLORIDE
     Indication: NEOPLASM MALIGNANT
  2. VOTRIENT [Suspect]
     Active Substance: PAZOPANIB HYDROCHLORIDE
     Indication: METASTATIC NEOPLASM
     Dosage: 400 MG
     Route: 065
     Dates: start: 20201112, end: 20210125

REACTIONS (13)
  - Vomiting [Unknown]
  - Metastatic neoplasm [Unknown]
  - Asthenia [Unknown]
  - Death [Fatal]
  - Confusional state [Unknown]
  - Malignant neoplasm progression [Unknown]
  - Nausea [Unknown]
  - Tumour inflammation [Unknown]
  - Paralysis [Unknown]
  - Decreased appetite [Unknown]
  - Drug ineffective [Unknown]
  - Abdominal pain [Unknown]
  - Headache [Unknown]

NARRATIVE: CASE EVENT DATE: 202012
